FAERS Safety Report 19240891 (Version 1)
Quarter: 2021Q2

REPORT INFORMATION
  Report Type: Spontaneous
  Country: IN (occurrence: IN)
  Receive Date: 20210511
  Receipt Date: 20210511
  Transmission Date: 20210717
  Serious: Yes (Other)
  Sender: FDA-Public Use
  Company Number: IN-CIPLA LTD.-2021IN03367

PATIENT

DRUGS (2)
  1. TICAGRELOR. [Interacting]
     Active Substance: TICAGRELOR
     Indication: ANTIPLATELET THERAPY
     Dosage: UNK
     Route: 065
  2. ATORVASTATIN [Suspect]
     Active Substance: ATORVASTATIN
     Indication: DYSLIPIDAEMIA
     Dosage: UNK
     Route: 065

REACTIONS (4)
  - Hyperkalaemia [Unknown]
  - Rhabdomyolysis [Unknown]
  - Acute kidney injury [Unknown]
  - Drug interaction [Unknown]
